FAERS Safety Report 22609043 (Version 1)
Quarter: 2023Q2

REPORT INFORMATION
  Report Type: Spontaneous
  Country: MX (occurrence: MX)
  Receive Date: 20230616
  Receipt Date: 20230616
  Transmission Date: 20230721
  Serious: Yes (Hospitalization)
  Sender: FDA-Public Use
  Company Number: MX-TOLMAR, INC.-23MX041419

PATIENT
  Age: 11 Year
  Sex: Male

DRUGS (3)
  1. ELIGARD [Suspect]
     Active Substance: LEUPROLIDE ACETATE
     Indication: Product used for unknown indication
     Dosage: UNK
  2. ELIGARD [Suspect]
     Active Substance: LEUPROLIDE ACETATE
     Indication: Product used for unknown indication
     Dosage: UNK
  3. LEVOTHYROXINE [Suspect]
     Active Substance: LEVOTHYROXINE
     Indication: Product used for unknown indication
     Dosage: UNK

REACTIONS (7)
  - COVID-19 [Unknown]
  - Multisystem inflammatory syndrome in children [Unknown]
  - Haemophagocytic lymphohistiocytosis [Unknown]
  - Cardiogenic shock [Unknown]
  - Hypovolaemic shock [Unknown]
  - Supraventricular tachycardia [Unknown]
  - Jaundice [Unknown]
